FAERS Safety Report 5955833-7 (Version None)
Quarter: 2008Q4

REPORT INFORMATION
  Report Type: 
  Country: None (occurrence: None)
  Receive Date: 20081117
  Receipt Date: 20081105
  Transmission Date: 20090506
  Serious: Yes (Other)
  Sender: FDA-Public Use
  Company Number: US-PFIZER INC-2008094020

PATIENT
  Sex: Male
  Weight: 84.09 kg

DRUGS (3)
  1. SERTRALINE [Suspect]
     Indication: ANXIETY
     Dates: start: 20080501
  2. SERTRALINE [Interacting]
     Indication: DEPRESSION
  3. MARIJUANA [Interacting]
     Dates: start: 20060101

REACTIONS (5)
  - DRUG ABUSE [None]
  - DRUG EFFECT DECREASED [None]
  - DRUG INTERACTION [None]
  - FEELING ABNORMAL [None]
  - UNEVALUABLE EVENT [None]
